FAERS Safety Report 7022593-0 (Version None)
Quarter: 2010Q3

REPORT INFORMATION
  Report Type: 
  Country: None (occurrence: None)
  Receive Date: 20100930
  Receipt Date: 20100923
  Transmission Date: 20110219
  Serious: Yes (Death, Life-Threatening, Hospitalization, Other)
  Sender: FDA-Public Use
  Company Number: CA-PFIZER INC-2010100229

PATIENT
  Age: 55 Year
  Sex: Male
  Weight: 125 kg

DRUGS (13)
  1. SUTENT [Suspect]
     Indication: RENAL CELL CARCINOMA
     Dosage: 50 MG, 1X/DAY FOR 4 WEEKS THEN 2 WEEKS OFF
     Route: 048
     Dates: start: 20090601
  2. ATACAND [Concomitant]
  3. DEXAMETHASONE [Concomitant]
  4. DOCUSATE SODIUM [Concomitant]
  5. LEVOTHYROXINE [Concomitant]
  6. PIPERACILLIN AND TAZOBACTAM [Concomitant]
  7. RABEPRAZOLE [Concomitant]
  8. FLOMAX [Concomitant]
  9. MAGNESIUM [Concomitant]
  10. TINZAPARIN SODIUM [Concomitant]
  11. DILAUDID [Concomitant]
  12. PROCHLORPERAZINE [Concomitant]
  13. KAYEXALATE [Concomitant]

REACTIONS (6)
  - CHEST PAIN [None]
  - DISEASE PROGRESSION [None]
  - LUNG INFECTION [None]
  - METASTATIC RENAL CELL CARCINOMA [None]
  - PNEUMOTHORAX [None]
  - PULMONARY NECROSIS [None]
